FAERS Safety Report 6337037-1 (Version None)
Quarter: 2009Q3

REPORT INFORMATION
  Report Type: 
  Country: None (occurrence: None)
  Receive Date: 20090831
  Receipt Date: 20090420
  Transmission Date: 20100115
  Serious: Yes (Other)
  Sender: FDA-Public Use
  Company Number: SPV1-2009-00741

PATIENT
  Age: 11 Year
  Sex: Male
  Weight: 36.3 kg

DRUGS (2)
  1. ADDERALL XR(AMPHETAMINE ASPARTATE, AMPHETAMINE SULFATE, DEXTROAMPHETAM [Suspect]
     Indication: ATTENTION DEFICIT/HYPERACTIVITY DISORDER
     Dosage: 10 MH, ONE DOSE, ORAL, 2.5 MG, 1X/DAY; QD (1/2 CAPSULE OF 10 MG), ORAL
     Route: 048
     Dates: start: 20090401, end: 20090401
  2. ADDERALL XR(AMPHETAMINE ASPARTATE, AMPHETAMINE SULFATE, DEXTROAMPHETAM [Suspect]
     Indication: ATTENTION DEFICIT/HYPERACTIVITY DISORDER
     Dosage: 10 MH, ONE DOSE, ORAL, 2.5 MG, 1X/DAY; QD (1/2 CAPSULE OF 10 MG), ORAL
     Route: 048
     Dates: start: 20090401, end: 20090401

REACTIONS (5)
  - INCORRECT DOSE ADMINISTERED [None]
  - LETHARGY [None]
  - SINUS BRADYCARDIA [None]
  - UNRESPONSIVE TO STIMULI [None]
  - WRONG TECHNIQUE IN DRUG USAGE PROCESS [None]
